FAERS Safety Report 13611366 (Version 5)
Quarter: 2018Q2

REPORT INFORMATION
  Report Type: Spontaneous
  Country: JP (occurrence: JP)
  Receive Date: 20170605
  Receipt Date: 20180615
  Transmission Date: 20180711
  Serious: Yes (Death)
  Sender: FDA-Public Use
  Company Number: JP-009507513-1705JPN003215J

PATIENT
  Age: 75 Year
  Sex: Male
  Weight: 77 kg

DRUGS (6)
  1. FENTOS [Concomitant]
     Active Substance: FENTANYL
     Dosage: 2.0 MG, QD
     Route: 062
  2. KEYTRUDA [Suspect]
     Active Substance: PEMBROLIZUMAB
     Indication: SQUAMOUS CELL CARCINOMA OF LUNG
     Dosage: 200 MG, Q3W
     Route: 041
     Dates: start: 20170519, end: 20170529
  3. MAGNESIUM OXIDE. [Concomitant]
     Active Substance: MAGNESIUM OXIDE
     Dosage: 330.0 MG, TID
     Route: 048
  4. GLYCYRON [Concomitant]
     Active Substance: AMMONIUM GLYCYRRHIZATE\GLYCINE\METHIONINE
     Dosage: 2.0 DF, TID
     Route: 048
  5. CANDESARTAN. [Concomitant]
     Active Substance: CANDESARTAN
     Dosage: 4.0 MG, QD
     Route: 048
  6. TS-1 [Concomitant]
     Active Substance: GIMERACIL\OTERACIL\TEGAFUR
     Indication: SQUAMOUS CELL CARCINOMA OF LUNG
     Dosage: 50.0 MG, BID
     Route: 048
     Dates: start: 20170512, end: 20170517

REACTIONS (1)
  - Liver disorder [Fatal]

NARRATIVE: CASE EVENT DATE: 201705
